FAERS Safety Report 24412197 (Version 2)
Quarter: 2025Q4

REPORT INFORMATION
  Report Type: Report from Study
  Country: GB (occurrence: GB)
  Receive Date: 20241008
  Receipt Date: 20251009
  Transmission Date: 20260118
  Serious: Yes (Other)
  Sender: SANDOZ
  Company Number: GB-002147023-NVSC2022GB280465

PATIENT
  Sex: Male

DRUGS (5)
  1. OMNITROPE [Suspect]
     Active Substance: SOMATROPIN
     Dosage: 0.30 MG, QD
     Route: 058
  2. OMNITROPE [Suspect]
     Active Substance: SOMATROPIN
     Indication: Growth hormone deficiency
     Dosage: 0.3 MG, Q4W
     Route: 058
  3. OMNITROPE [Suspect]
     Active Substance: SOMATROPIN
     Dosage: 0.40 MG, QD(OD)
     Route: 058
  4. OMNITROPE [Suspect]
     Active Substance: SOMATROPIN
     Indication: Hypopituitarism
     Dosage: 0.4 MG, Q4W
     Route: 058
  5. OMNITROPE [Suspect]
     Active Substance: SOMATROPIN
     Dosage: 0.5 MG, Q4W
     Route: 058

REACTIONS (11)
  - Lower respiratory tract infection [Unknown]
  - Osteoporosis [Unknown]
  - Cough [Unknown]
  - Abdominal distension [Unknown]
  - Condition aggravated [Unknown]
  - Hypertension [Unknown]
  - Injection site pruritus [Unknown]
  - Injection site pain [Unknown]
  - Product dose omission issue [Unknown]
  - Product administered at inappropriate site [Unknown]
  - Incorrect dose administered [Unknown]
